FAERS Safety Report 25134556 (Version 1)
Quarter: 2025Q1

REPORT INFORMATION
  Report Type: Other
  Country: US (occurrence: US)
  Receive Date: 20250328
  Receipt Date: 20250328
  Transmission Date: 20250409
  Serious: Yes (Other)
  Sender: EMD SERONO INC
  Company Number: US-Merck Healthcare KGaA-2025015583

PATIENT

DRUGS (1)
  1. METFORMIN [Suspect]
     Active Substance: METFORMIN HYDROCHLORIDE
     Indication: Gestational diabetes

REACTIONS (4)
  - Mitochondrial cytopathy [Unknown]
  - Metabolic disorder [Unknown]
  - Fatty acid oxidation disorder [Unknown]
  - Foetal exposure during pregnancy [Recovered/Resolved]
